FAERS Safety Report 20764777 (Version 1)
Quarter: 2022Q2

REPORT INFORMATION
  Report Type: Spontaneous
  Country: US (occurrence: US)
  Receive Date: 20220428
  Receipt Date: 20220428
  Transmission Date: 20220720
  Serious: No
  Sender: FDA-Public Use
  Company Number: US-PFIZER INC-2021106358

PATIENT
  Age: 38 Year
  Sex: Male

DRUGS (1)
  1. EUCRISA [Suspect]
     Active Substance: CRISABOROLE
     Indication: Dermatitis
     Dosage: BID (TWICE A DAY) TIL CLEAR
     Route: 061

REACTIONS (2)
  - Off label use [Unknown]
  - Skin burning sensation [Unknown]
